FAERS Safety Report 26128277 (Version 2)
Quarter: 2025Q4

REPORT INFORMATION
  Report Type: Spontaneous
  Country: CH (occurrence: CH)
  Receive Date: 20251207
  Receipt Date: 20251218
  Transmission Date: 20260118
  Serious: Yes (Life-Threatening, Hospitalization, Other)
  Sender: CSL BEHRING
  Company Number: None

PATIENT
  Age: 9 Year
  Sex: Male
  Weight: 35 kg

DRUGS (22)
  1. PRIVIGEN [Suspect]
     Active Substance: HUMAN IMMUNOGLOBULIN G
     Indication: Transfusion reaction
     Dosage: 1 G/KG
     Route: 042
     Dates: start: 20200901, end: 20251007
  2. PRIVIGEN [Suspect]
     Active Substance: HUMAN IMMUNOGLOBULIN G
     Dosage: 15 G
     Route: 042
     Dates: start: 20200901
  3. PRIVIGEN [Suspect]
     Active Substance: HUMAN IMMUNOGLOBULIN G
     Dosage: 17 G
     Route: 042
     Dates: start: 20200923
  4. PRIVIGEN [Suspect]
     Active Substance: HUMAN IMMUNOGLOBULIN G
     Dosage: 25 G
     Route: 042
     Dates: start: 20250624
  5. PRIVIGEN [Suspect]
     Active Substance: HUMAN IMMUNOGLOBULIN G
     Dosage: 27.7 G
     Route: 042
     Dates: start: 20250808
  6. PRIVIGEN [Suspect]
     Active Substance: HUMAN IMMUNOGLOBULIN G
     Dosage: 27 G
     Route: 042
     Dates: start: 20250819
  7. PRIVIGEN [Suspect]
     Active Substance: HUMAN IMMUNOGLOBULIN G
     Dosage: 25 G
     Route: 042
     Dates: start: 20250906
  8. PRIVIGEN [Suspect]
     Active Substance: HUMAN IMMUNOGLOBULIN G
     Dosage: 13.5 G
     Route: 042
     Dates: start: 20250910
  9. PRIVIGEN [Suspect]
     Active Substance: HUMAN IMMUNOGLOBULIN G
     Dosage: 13.5 G
     Route: 042
     Dates: start: 20250917
  10. PRIVIGEN [Suspect]
     Active Substance: HUMAN IMMUNOGLOBULIN G
     Dosage: 13.5 G
     Route: 042
     Dates: start: 20250921
  11. PRIVIGEN [Suspect]
     Active Substance: HUMAN IMMUNOGLOBULIN G
     Dosage: 36 G
     Route: 042
     Dates: start: 20250924
  12. PRIVIGEN [Suspect]
     Active Substance: HUMAN IMMUNOGLOBULIN G
     Dosage: 30 G
     Route: 042
     Dates: start: 20251007
  13. RITUXIMAB [Suspect]
     Active Substance: RITUXIMAB
     Indication: Product used for unknown indication
     Dosage: 375 MG/M2 (4 DOSES TOTAL)
     Route: 042
     Dates: start: 20240207
  14. RITUXIMAB [Suspect]
     Active Substance: RITUXIMAB
     Dosage: 375 MG/M2 (4 DOSES TOTAL)
     Route: 042
     Dates: start: 20240215, end: 20240228
  15. RITUXIMAB [Suspect]
     Active Substance: RITUXIMAB
     Dosage: 375 MG/M2  (4 DOSES TOTAL)
     Route: 042
     Dates: start: 20240221, end: 20240228
  16. RITUXIMAB [Suspect]
     Active Substance: RITUXIMAB
     Dosage: 375 MG/M2 (4 DOSES TOTAL)
     Route: 042
     Dates: start: 20240228
  17. DARZALEX [Suspect]
     Active Substance: DARATUMUMAB
     Indication: Transfusion reaction
     Dosage: 436 MG (3 DOSES TOTAL)
     Route: 042
     Dates: start: 20250929
  18. DARZALEX [Suspect]
     Active Substance: DARATUMUMAB
     Dosage: 436 MG (3 DOSES TOTAL)
     Route: 042
     Dates: start: 20251006
  19. DARZALEX [Suspect]
     Active Substance: DARATUMUMAB
     Dosage: 436 MG (3 DOSES TOTAL)
     Route: 042
     Dates: start: 20251019
  20. CYCLOSPORINE [Suspect]
     Active Substance: CYCLOSPORINE
     Indication: Alloimmunisation
     Dosage: 67.5 MG, BID
     Route: 048
     Dates: start: 20250911, end: 20251008
  21. TRUXIMA [Suspect]
     Active Substance: RITUXIMAB-ABBS
     Indication: Product used for unknown indication
     Dosage: 350 MG
     Route: 042
     Dates: start: 20250623, end: 20250623
  22. MYCOPHENOLATE MOFETIL [Suspect]
     Active Substance: MYCOPHENOLATE MOFETIL
     Indication: Immunosuppression
     Dosage: 500 MG, BID
     Route: 048
     Dates: start: 20250625, end: 202510

REACTIONS (13)
  - Posterior reversible encephalopathy syndrome [Recovering/Resolving]
  - Loss of consciousness [Unknown]
  - Hypotonia [Unknown]
  - Reversible cerebral vasoconstriction syndrome [Unknown]
  - Anal incontinence [Unknown]
  - Urinary incontinence [Unknown]
  - Blood pressure systolic increased [Unknown]
  - Tachycardia [Unknown]
  - Eye movement disorder [Unknown]
  - Oxygen saturation decreased [Unknown]
  - Respiratory acidosis [Unknown]
  - Dyspnoea [Unknown]
  - Off label use [Unknown]

NARRATIVE: CASE EVENT DATE: 20251008
